FAERS Safety Report 26115860 (Version 1)
Quarter: 2025Q4

REPORT INFORMATION
  Report Type: Spontaneous
  Country: US (occurrence: US)
  Receive Date: 20251203
  Receipt Date: 20251203
  Transmission Date: 20260118
  Serious: Yes (Other)
  Sender: TEVA
  Company Number: US-TEVA-VS-3394819

PATIENT
  Sex: Female

DRUGS (1)
  1. ALBUTEROL SULFATE [Suspect]
     Active Substance: ALBUTEROL SULFATE
     Indication: Adverse event
     Dosage: HFA, METERED DOSE AEROSOL, 1 PUFF, RESPIRATORY (INHALATION)
     Route: 065
     Dates: start: 20251118

REACTIONS (4)
  - Adverse event [Unknown]
  - Nausea [Recovering/Resolving]
  - Headache [Unknown]
  - Palpitations [Unknown]

NARRATIVE: CASE EVENT DATE: 20251118
